FAERS Safety Report 26043183 (Version 1)
Quarter: 2025Q4

REPORT INFORMATION
  Report Type: Spontaneous
  Country: TW (occurrence: TW)
  Receive Date: 20251113
  Receipt Date: 20251113
  Transmission Date: 20260117
  Serious: Yes (Death, Hospitalization)
  Sender: EMD SERONO INC
  Company Number: TW-Merck Healthcare KGaA-2025057811

PATIENT
  Age: 8 Decade
  Sex: Male

DRUGS (1)
  1. BAVENCIO [Suspect]
     Active Substance: AVELUMAB
     Indication: Product used for unknown indication

REACTIONS (3)
  - Cerebrovascular accident [Recovered/Resolved]
  - Dyspnoea [Recovered/Resolved]
  - Death [Fatal]
